FAERS Safety Report 5230816-3 (Version None)
Quarter: 2007Q1

REPORT INFORMATION
  Report Type: 
  Country: None (occurrence: None)
  Receive Date: 20070202
  Receipt Date: 20070118
  Transmission Date: 20070707
  Serious: Yes (Hospitalization)
  Sender: FDA-Public Use
  Company Number: URSO-2007-001

PATIENT
  Age: 77 Year
  Sex: Male

DRUGS (6)
  1. URSO 250 [Suspect]
     Indication: JAUNDICE
     Dosage: 300MG PO
     Route: 048
     Dates: start: 20060824, end: 20061212
  2. LANSOPRAZOLE [Suspect]
     Indication: GASTRIC ULCER
     Dosage: 30MG PO
     Route: 048
     Dates: start: 20060816, end: 20061212
  3. WARFARIN POTASSIUM [Concomitant]
  4. GLYCYRON (GLYCYRRHIZIC ACID, DI-METHIONINE COMBINED DRUG) [Concomitant]
  5. FLIVAS (NAFTOPIDIL) [Concomitant]
  6. EVIPROSTAT (PIPSISSEWA EXTRACT, JAPANESE ASPEN EXTRACT COMBINED DRUG) [Concomitant]

REACTIONS (3)
  - INTERSTITIAL LUNG DISEASE [None]
  - PALPITATIONS [None]
  - PLEURAL EFFUSION [None]
